FAERS Safety Report 10930428 (Version 4)
Quarter: 2015Q2

REPORT INFORMATION
  Report Type: Report from Study
  Country: KR (occurrence: KR)
  Receive Date: 20150319
  Receipt Date: 20150414
  Transmission Date: 20150821
  Serious: Yes (Hospitalization)
  Sender: FDA-Public Use
  Company Number: KR-GLAXOSMITHKLINE-KR2015GSK035666

PATIENT
  Age: 57 Year
  Sex: Female
  Weight: 61.2 kg

DRUGS (10)
  1. HEXAMEDIN [Concomitant]
     Indication: STOMATITIS
     Dosage: 100 ML, PRN
     Route: 048
     Dates: start: 20150202
  2. PANTOPRAZOLE [Concomitant]
     Active Substance: PANTOPRAZOLE SODIUM
     Indication: ABDOMINAL PAIN UPPER
     Dosage: 20 MG, PRN
     Route: 048
     Dates: start: 20140829
  3. TYKERB [Suspect]
     Active Substance: LAPATINIB DITOSYLATE
     Dosage: 750 MG, QD
     Route: 048
     Dates: start: 20141013, end: 20150314
  4. TYKERB [Suspect]
     Active Substance: LAPATINIB DITOSYLATE
     Indication: BREAST CANCER
     Dosage: 1000 MG, QD
     Route: 048
     Dates: start: 20140822
  5. VINORELBINE TARTRATE. [Suspect]
     Active Substance: VINORELBINE TARTRATE
     Dosage: 16 MG, CYC
     Route: 042
     Dates: start: 20140912, end: 20150312
  6. TARGIN [Concomitant]
     Active Substance: NALOXONE HYDROCHLORIDE\OXYCODONE HYDROCHLORIDE
     Indication: ABDOMINAL PAIN
     Dosage: 10 MG, PRN
     Route: 048
     Dates: start: 20140904
  7. MEGESTROL [Concomitant]
     Active Substance: MEGESTROL
     Indication: DECREASED APPETITE
     Dosage: 10 ML, PRN
     Route: 048
     Dates: start: 20141013
  8. IR CODON [Concomitant]
     Indication: MYALGIA
     Dosage: 5 MG, PRN
     Route: 048
     Dates: start: 20150312
  9. VINORELBINE TARTRATE. [Suspect]
     Active Substance: VINORELBINE TARTRATE
     Indication: BREAST CANCER
     Dosage: 20 MG, CYC
     Route: 042
     Dates: start: 20140822
  10. ACYCLOVIR CREAM [Concomitant]
     Indication: STOMATITIS
     Dosage: 1 UNK, UNK
     Dates: start: 20150227

REACTIONS (1)
  - Colitis [Recovered/Resolved]

NARRATIVE: CASE EVENT DATE: 20150314
